FAERS Safety Report 10664537 (Version 6)
Quarter: 2017Q4

REPORT INFORMATION
  Report Type: Spontaneous
  Country: US (occurrence: US)
  Receive Date: 20141219
  Receipt Date: 20171006
  Transmission Date: 20180320
  Serious: Yes (Hospitalization, Other)
  Sender: FDA-Public Use
  Company Number: US-ASTRAZENECA-2004UW15276

PATIENT
  Age: 67 Year
  Sex: Female
  Weight: 95.3 kg

DRUGS (25)
  1. ASPIRIN. [Concomitant]
     Active Substance: ASPIRIN
     Route: 048
  2. SELENIUM [Concomitant]
     Active Substance: SELENIUM
     Route: 048
  3. PREDNISONE. [Concomitant]
     Active Substance: PREDNISONE
     Indication: VIRAL UPPER RESPIRATORY TRACT INFECTION
     Dosage: 10.0MG UNKNOWN
  4. CRESTOR [Suspect]
     Active Substance: ROSUVASTATIN CALCIUM
     Indication: BLOOD CHOLESTEROL INCREASED
     Dosage: ON TUESDAYS, THURSDAYS, SATURDAYS AND SUNDAYS
     Route: 048
     Dates: end: 20040610
  5. NEXIUM [Suspect]
     Active Substance: ESOMEPRAZOLE MAGNESIUM
     Indication: GASTROOESOPHAGEAL REFLUX DISEASE
     Route: 048
  6. SPIRONOLACTONE. [Concomitant]
     Active Substance: SPIRONOLACTONE
  7. NEXIUM [Suspect]
     Active Substance: ESOMEPRAZOLE MAGNESIUM
     Indication: HIATUS HERNIA
     Route: 048
  8. PRILOSEC [Suspect]
     Active Substance: OMEPRAZOLE MAGNESIUM
     Indication: REFLUX GASTRITIS
     Route: 048
  9. MAGNESIUM [Concomitant]
     Active Substance: MAGNESIUM
     Route: 048
  10. PRILOSEC [Suspect]
     Active Substance: OMEPRAZOLE MAGNESIUM
     Indication: BARRETT^S OESOPHAGUS
     Route: 048
  11. CALCIUM WITH VITAMIN D [Concomitant]
     Active Substance: CALCIUM\VITAMIN D
     Route: 048
  12. PROLIA [Concomitant]
     Active Substance: DENOSUMAB
     Indication: REFLUX GASTRITIS
     Dosage: BID
     Route: 048
  13. NEXIUM [Suspect]
     Active Substance: ESOMEPRAZOLE MAGNESIUM
     Indication: REFLUX GASTRITIS
     Route: 048
  14. ZETIA [Concomitant]
     Active Substance: EZETIMIBE
  15. VITAMIN B12 [Concomitant]
     Active Substance: CYANOCOBALAMIN
     Dosage: MONTHLY
  16. FISH OIL [Concomitant]
     Active Substance: FISH OIL
     Route: 048
  17. NEXIUM [Suspect]
     Active Substance: ESOMEPRAZOLE MAGNESIUM
     Indication: BARRETT^S OESOPHAGUS
     Route: 048
  18. POTASSIUM [Concomitant]
     Active Substance: POTASSIUM
  19. POCOQ 10 [Concomitant]
     Route: 048
  20. PREDNISONE. [Concomitant]
     Active Substance: PREDNISONE
     Indication: VIRAL UPPER RESPIRATORY TRACT INFECTION
     Dosage: 20.0MG UNKNOWN
  21. PRILOSEC [Suspect]
     Active Substance: OMEPRAZOLE MAGNESIUM
     Indication: HIATUS HERNIA
     Route: 048
  22. METOPROLOL TARTRATE. [Suspect]
     Active Substance: METOPROLOL TARTRATE
     Indication: HYPERTENSION
     Route: 048
  23. VITAMINS NOS [Concomitant]
     Active Substance: VITAMINS
     Dosage: BID
  24. METOPROLOL TARTRATE. [Suspect]
     Active Substance: METOPROLOL TARTRATE
     Indication: HYPERTENSION
     Dosage: 50 MG/HALF A TABLET IN THE MORNING AND AT NIGHT
     Route: 048
  25. VITAMIN C [Concomitant]
     Active Substance: ASCORBIC ACID

REACTIONS (16)
  - Tendon injury [Unknown]
  - Blood pressure abnormal [Unknown]
  - Drug ineffective for unapproved indication [Unknown]
  - Renal cancer [Recovered/Resolved]
  - Muscular weakness [Unknown]
  - Myalgia [Recovering/Resolving]
  - Fall [Unknown]
  - Hiatus hernia [Unknown]
  - Weight increased [Unknown]
  - Gait disturbance [Unknown]
  - Barrett^s oesophagus [Unknown]
  - Nasopharyngitis [Unknown]
  - Product use in unapproved indication [Unknown]
  - Joint injury [Unknown]
  - Malaise [Unknown]
  - Off label use [Unknown]

NARRATIVE: CASE EVENT DATE: 2008
